FAERS Safety Report 7285761-9 (Version None)
Quarter: 2011Q1

REPORT INFORMATION
  Report Type: 
  Country: None (occurrence: None)
  Receive Date: 20110210
  Receipt Date: 20110207
  Transmission Date: 20110831
  Serious: Yes (Life-Threatening, Hospitalization, Other)
  Sender: FDA-Public Use
  Company Number: US-ELI_LILLY_AND_COMPANY-US200812002025

PATIENT
  Sex: Female
  Weight: 72.562 kg

DRUGS (11)
  1. BYETTA [Suspect]
     Indication: TYPE 2 DIABETES MELLITUS
     Dosage: 5 UG, 2/D
     Route: 058
     Dates: start: 20080611, end: 20080909
  2. ASPIRIN [Concomitant]
     Indication: CEREBROVASCULAR ACCIDENT
     Dosage: 325 MG, DAILY (1/D)
     Route: 065
     Dates: start: 20081016, end: 20081203
  3. ZOFRAN [Concomitant]
     Indication: NAUSEA
     Dosage: 8 MG, 2/D
     Dates: start: 20081203, end: 20090109
  4. BYETTA [Suspect]
     Dosage: 10 UG, 2/D
     Route: 058
     Dates: start: 20080909, end: 20081203
  5. NYSTATIN [Concomitant]
     Indication: FUNGAL INFECTION
     Dosage: 15 G, 2/D
     Route: 065
     Dates: start: 20081203, end: 20090109
  6. RANITIDINE [Concomitant]
     Indication: GASTROOESOPHAGEAL REFLUX DISEASE
     Dosage: 150 MG, 2/D
     Route: 065
     Dates: start: 20080609, end: 20090109
  7. PRAVASTATIN [Concomitant]
     Indication: HYPERLIPIDAEMIA
     Dosage: 80 MG, DAILY (1/D)
     Route: 065
     Dates: start: 20071128
  8. METOPROLOL [Concomitant]
     Indication: HYPERTENSION
     Dosage: 25 MG, DAILY (1/D)
     Route: 065
     Dates: start: 20070119
  9. DRUG USED IN DIABETES [Concomitant]
  10. NIACIN [Concomitant]
     Indication: HYPERLIPIDAEMIA
     Dosage: 500 MG, DAILY (1/D)
     Route: 065
     Dates: start: 20060220
  11. CYANOCOBALAMIN [Concomitant]
     Indication: PERNICIOUS ANAEMIA
     Dosage: 1000 MG, MONTHLY (1/M)
     Route: 065
     Dates: start: 20070817

REACTIONS (8)
  - PANCREATITIS [None]
  - RENAL FAILURE [None]
  - DEHYDRATION [None]
  - DIARRHOEA [None]
  - EPISTAXIS [None]
  - METABOLIC ACIDOSIS [None]
  - WEIGHT DECREASED [None]
  - EXTRASYSTOLES [None]
